FAERS Safety Report 4416856-2 (Version None)
Quarter: 2004Q2

REPORT INFORMATION
  Report Type: 
  Country: None (occurrence: None)
  Receive Date: 20040628
  Receipt Date: 20040315
  Transmission Date: 20050107
  Serious: No
  Sender: FDA-Public Use
  Company Number: USA-2004-0013801

PATIENT
  Age: 60 Year
  Sex: Female

DRUGS (3)
  1. SPECTRACEF [Suspect]
     Indication: UPPER RESPIRATORY TRACT INFECTION
     Dosage: 200 MG, BID; UNKNOWN
     Route: 065
  2. PEPCID AC [Concomitant]
  3. ANTIHYPERTENSIVES [Concomitant]

REACTIONS (1)
  - DECREASED APPETITE [None]
